FAERS Safety Report 8661779 (Version 4)
Quarter: 2019Q3

REPORT INFORMATION
  Report Type: Report from Study
  Country: PL (occurrence: PL)
  Receive Date: 20120712
  Receipt Date: 20190723
  Transmission Date: 20191005
  Serious: Yes (Hospitalization)
  Sender: FDA-Public Use
  Company Number: PL-UCBSA-061252

PATIENT
  Age: 57 Year
  Sex: Female
  Weight: 117 kg

DRUGS (5)
  1. BI-PROFENID [Concomitant]
     Active Substance: KETOPROFEN
     Indication: PSORIATIC ARTHROPATHY
     Dosage: 150 MG, ONCE DAILY (QD)
     Dates: start: 201102
  2. FUROSEMID [Concomitant]
     Active Substance: FUROSEMIDE
     Indication: HYPERTENSION
     Dosage: 40 MG, ONCE DAILY (QD)
     Dates: start: 2008
  3. CERTOLIZUMAB PEGOL VS PLACEBO [Suspect]
     Active Substance: CERTOLIZUMAB PEGOL
     Indication: PSORIATIC ARTHROPATHY
     Route: 058
     Dates: start: 20120215, end: 20120703
  4. SPIRONOLACTONE. [Concomitant]
     Active Substance: SPIRONOLACTONE
     Indication: HYPERTENSION
     Dosage: 25 MG, ONCE DAILY (QD)
     Dates: start: 2008
  5. LOSACOR [Concomitant]
     Active Substance: LOSARTAN POTASSIUM
     Indication: HYPERTENSION
     Dosage: 50 MG, ONCE DAILY (QD)
     Dates: start: 2008

REACTIONS (1)
  - Erysipelas [Recovered/Resolved]

NARRATIVE: CASE EVENT DATE: 20120703
